FAERS Safety Report 7467304-X (Version None)
Quarter: 2011Q2

REPORT INFORMATION
  Report Type: 
  Country: None (occurrence: None)
  Receive Date: 20110509
  Receipt Date: 20110429
  Transmission Date: 20111010
  Serious: Yes (Hospitalization, Other)
  Sender: FDA-Public Use
  Company Number: PHHY2011US07492

PATIENT
  Sex: Female
  Weight: 103.6 kg

DRUGS (11)
  1. IRON PENTACARBONYL [Concomitant]
     Dosage: 45 MG, TID
     Route: 048
  2. SYNTHROID [Concomitant]
     Dosage: 88 UG, QD
     Route: 048
  3. SIMVASTATIN [Concomitant]
     Dosage: 80 MG, QD
  4. ALLOPURINOL [Concomitant]
     Dosage: 100 MG, QD
     Route: 048
  5. NEORAL [Suspect]
     Indication: RENAL TRANSPLANT
     Dosage: 125 MG, BID
     Route: 048
  6. CELL CEPT [Concomitant]
     Dosage: 500 MG, BID
  7. SPIRONOLACTONE [Concomitant]
     Dosage: 25 MG, QD
     Route: 048
  8. PREDNISONE [Concomitant]
     Dosage: 10 MG, Q48H
     Route: 048
  9. LOSARTAN [Concomitant]
     Dosage: 50 MG, QD
     Route: 048
  10. MTV [Concomitant]
     Dosage: 1 DF, QD
     Route: 048
  11. LASIX [Concomitant]
     Dosage: 20 MG, BID
     Route: 048

REACTIONS (23)
  - PYURIA [None]
  - DIARRHOEA [None]
  - PULMONARY OEDEMA [None]
  - CARDIAC OUTPUT INCREASED [None]
  - CARDIOMEGALY [None]
  - PYELONEPHRITIS [None]
  - HYPOKALAEMIA [None]
  - FOOD POISONING [None]
  - BLOOD CREATINE INCREASED [None]
  - VOMITING [None]
  - MALAISE [None]
  - LUNG DISORDER [None]
  - INFERIOR VENA CAVA DILATATION [None]
  - SEPSIS [None]
  - PYREXIA [None]
  - CHILLS [None]
  - NAUSEA [None]
  - WHITE BLOOD CELL COUNT INCREASED [None]
  - TACHYCARDIA [None]
  - PULMONARY ARTERIAL PRESSURE INCREASED [None]
  - RIGHT ATRIAL PRESSURE INCREASED [None]
  - HYPOTENSION [None]
  - TACHYPNOEA [None]
